FAERS Safety Report 11441114 (Version 1)
Quarter: 2015Q3

REPORT INFORMATION
  Report Type: Spontaneous
  Country: US (occurrence: None)
  Receive Date: 20150831
  Receipt Date: 20150831
  Transmission Date: 20151125
  Serious: No
  Sender: FDA-Public Use
  Company Number: None

PATIENT
  Age: 54 Year
  Sex: Male
  Weight: 65.77 kg

DRUGS (11)
  1. HYDROCODONE [Concomitant]
     Active Substance: HYDROCODONE
  2. SUSTIVA [Concomitant]
     Active Substance: EFAVIRENZ
  3. MARANOL [Concomitant]
  4. ANDROGEL [Concomitant]
     Active Substance: TESTOSTERONE
  5. MULTIVITAMINS [Concomitant]
     Active Substance: VITAMINS
  6. LANSOPRAZOLE. [Concomitant]
     Active Substance: LANSOPRAZOLE
  7. RITALIN [Concomitant]
     Active Substance: METHYLPHENIDATE HYDROCHLORIDE
  8. JANUVIA [Suspect]
     Active Substance: SITAGLIPTIN PHOSPHATE
     Indication: TYPE 2 DIABETES MELLITUS
     Dosage: 1 TAB  ONCE DAILY TAKEN BY MOUTH?DURATION: 4 OR 5 YEARS
     Route: 048
  9. EPZICOM [Concomitant]
     Active Substance: ABACAVIR SULFATE\LAMIVUDINE
  10. WELLBUTRIN [Concomitant]
     Active Substance: BUPROPION HYDROCHLORIDE
  11. DOXAZOSIN [Concomitant]
     Active Substance: DOXAZOSIN\DOXAZOSIN MESYLATE

REACTIONS (4)
  - Drug withdrawal syndrome [None]
  - Joint stiffness [None]
  - Arthralgia [None]
  - Drug dependence [None]

NARRATIVE: CASE EVENT DATE: 20150814
